FAERS Safety Report 26095957 (Version 1)
Quarter: 2025Q4

REPORT INFORMATION
  Report Type: Spontaneous
  Country: US (occurrence: US)
  Receive Date: 20251127
  Receipt Date: 20251127
  Transmission Date: 20260117
  Serious: No
  Sender: MANKIND PHARMA
  Company Number: US-MankindUS-000328

PATIENT

DRUGS (1)
  1. ACETAZOLAMIDE [Suspect]
     Active Substance: ACETAZOLAMIDE
     Indication: Intracranial pressure increased
     Dosage: STRENGTH: 250 MGDOSE: 2 TIMES A DAY (4 PILLS IN THE MORNING AND 4 PILLS IN THE NIGHT).
     Dates: start: 20250203, end: 20250205

REACTIONS (2)
  - Paraesthesia [Recovering/Resolving]
  - Hypoaesthesia [Recovering/Resolving]

NARRATIVE: CASE EVENT DATE: 20250203
